FAERS Safety Report 8048046-9 (Version None)
Quarter: 2012Q1

REPORT INFORMATION
  Report Type: 
  Country: None (occurrence: None)
  Receive Date: 20120117
  Receipt Date: 20120106
  Transmission Date: 20120608
  Serious: Yes (Death, Hospitalization, Other)
  Sender: FDA-Public Use
  Company Number: CH-BIOGENIDEC-2011BI048699

PATIENT
  Sex: Female
  Weight: 52 kg

DRUGS (8)
  1. AVONEX [Suspect]
     Indication: MULTIPLE SCLEROSIS
     Route: 030
     Dates: start: 20010330, end: 20070901
  2. AVONEX [Suspect]
     Route: 030
     Dates: start: 20080901, end: 20111001
  3. NEBIVOLOL HCL [Concomitant]
  4. ATORVASTATIN CALCIUM [Concomitant]
  5. DANCOR [Concomitant]
  6. URSO FALK [Concomitant]
  7. FLUDEX SR [Concomitant]
  8. ASPIRIN [Concomitant]

REACTIONS (12)
  - HYPERTENSIVE HEART DISEASE [None]
  - PERIPHERAL ARTERIAL OCCLUSIVE DISEASE [None]
  - DEATH [None]
  - HEPATIC CIRRHOSIS [None]
  - VENTRICULAR SEPTAL DEFECT [None]
  - ANGINA UNSTABLE [None]
  - ACUTE CORONARY SYNDROME [None]
  - FEMORAL ARTERIAL STENOSIS [None]
  - INTESTINAL ISCHAEMIA [None]
  - BUNDLE BRANCH BLOCK LEFT [None]
  - POST PROCEDURAL HAEMORRHAGE [None]
  - ACUTE MYOCARDIAL INFARCTION [None]
